FAERS Safety Report 25342374 (Version 2)
Quarter: 2025Q3

REPORT INFORMATION
  Report Type: Spontaneous
  Country: US (occurrence: US)
  Receive Date: 20250521
  Receipt Date: 20250820
  Transmission Date: 20251020
  Serious: No
  Sender: CATALYST PHARMA
  Company Number: US-CATALYST PHARMACEUTICALS-US-CATA-25-00215

PATIENT
  Age: 6 Year
  Sex: Male
  Weight: 18.698 kg

DRUGS (7)
  1. AGAMREE [Suspect]
     Active Substance: VAMOROLONE
     Indication: Duchenne muscular dystrophy
     Dosage: 2.8 ML BY MOUTH DAILY
     Route: 048
     Dates: start: 20241220
  2. HERBALS [Concomitant]
     Active Substance: HERBALS
     Indication: Immune system disorder
     Route: 065
  3. FLINTSTONES MULTIVITAMIN [Concomitant]
     Indication: Hypovitaminosis
     Dosage: ONE TABLET DAILY
     Route: 065
  4. FLUOXETINE [Concomitant]
     Active Substance: FLUOXETINE HYDROCHLORIDE
     Indication: Anxiety
     Dosage: 10 MG ONE DAILY
     Route: 065
  5. FLUOXETINE [Concomitant]
     Active Substance: FLUOXETINE HYDROCHLORIDE
     Indication: Selective mutism
  6. MELATONIN [Concomitant]
     Active Substance: MELATONIN
     Indication: Insomnia
     Route: 065
  7. PEDIA-LAX [Concomitant]
     Indication: Constipation
     Route: 065

REACTIONS (2)
  - Influenza [Recovered/Resolved]
  - Vomiting [Recovered/Resolved]

NARRATIVE: CASE EVENT DATE: 20250209
